FAERS Safety Report 24316092 (Version 1)
Quarter: 2024Q3

REPORT INFORMATION
  Report Type: Spontaneous
  Country: AU (occurrence: AU)
  Receive Date: 20240913
  Receipt Date: 20240913
  Transmission Date: 20241016
  Serious: Yes (Other)
  Sender: RANBAXY
  Company Number: AU-SUN PHARMACEUTICAL INDUSTRIES LTD-2024R1-466253

PATIENT
  Age: 85 Year
  Sex: Male

DRUGS (8)
  1. METHOTREXATE [Suspect]
     Active Substance: METHOTREXATE
     Indication: Chronic actinic dermatitis
     Dosage: WEEKLY FOR 1 YEAR
     Route: 065
  2. MYCOPHENOLATE MOFETIL [Suspect]
     Active Substance: MYCOPHENOLATE MOFETIL
     Indication: Chronic actinic dermatitis
     Dosage: 2 GRAM, 1 DAY
     Route: 065
  3. PREDNISOLONE [Suspect]
     Active Substance: PREDNISOLONE
     Indication: Chronic actinic dermatitis
     Dosage: UNKNOWN
     Route: 065
  4. AZATHIOPRINE [Suspect]
     Active Substance: AZATHIOPRINE
     Indication: Chronic actinic dermatitis
     Dosage: 100 MILLIGRAM
     Route: 065
  5. BETAMETHASONE [Suspect]
     Active Substance: BETAMETHASONE
     Indication: Chronic actinic dermatitis
     Route: 061
  6. CYCLOSPORINE [Suspect]
     Active Substance: CYCLOSPORINE
     Indication: Chronic actinic dermatitis
     Dosage: 200 MILLIGRAM, 1 DAY
  7. DUPILUMAB [Concomitant]
     Active Substance: DUPILUMAB
     Indication: Chronic actinic dermatitis
     Dosage: 300 MILLIGRAM
     Route: 065
  8. DUPILUMAB [Concomitant]
     Active Substance: DUPILUMAB
     Dosage: 600 MILLIGRAM
     Route: 065

REACTIONS (3)
  - Hepatotoxicity [Unknown]
  - Off label use [Unknown]
  - Drug ineffective [Unknown]
